FAERS Safety Report 9612482 (Version 2)
Quarter: 2013Q4

REPORT INFORMATION
  Report Type: Report from Study
  Country: US (occurrence: US)
  Receive Date: 20131010
  Receipt Date: 20131010
  Transmission Date: 20140711
  Serious: Yes (Other)
  Sender: FDA-Public Use
  Company Number: US-TEVA-433093USA

PATIENT
  Age: 13 Year
  Sex: Female

DRUGS (1)
  1. CLARAVIS [Suspect]
     Route: 048
     Dates: start: 20130822, end: 201309

REACTIONS (3)
  - Suicide attempt [Recovered/Resolved]
  - Depression [Unknown]
  - Depressed mood [Recovered/Resolved]
